FAERS Safety Report 21086523 (Version 1)
Quarter: 2022Q3

REPORT INFORMATION
  Report Type: Spontaneous
  Country: US (occurrence: US)
  Receive Date: 20220715
  Receipt Date: 20220715
  Transmission Date: 20221027
  Serious: Yes (Hospitalization, Other)
  Sender: FDA-Public Use
  Company Number: US-NOVARTISTESTPH-NVSC2022US159783

PATIENT
  Weight: 23 kg

DRUGS (1)
  1. KYMRIAH [Suspect]
     Active Substance: TISAGENLECLEUCEL
     Indication: Acute lymphocytic leukaemia
     Dosage: ONCE/SINGLE (3.9E6 CAR-POSITIVE T CELLS)
     Route: 042
     Dates: start: 20220707

REACTIONS (1)
  - Cytokine release syndrome [Unknown]
